FAERS Safety Report 10194945 (Version 3)
Quarter: 2014Q2

REPORT INFORMATION
  Report Type: Spontaneous
  Country: US (occurrence: US)
  Receive Date: 20140526
  Receipt Date: 20140602
  Transmission Date: 20141212
  Serious: No
  Sender: FDA-Public Use
  Company Number: US-PFIZER INC-2014127403

PATIENT
  Age: 56 Year
  Sex: Male
  Weight: 72.56 kg

DRUGS (2)
  1. VIAGRA [Suspect]
     Indication: ERECTILE DYSFUNCTION
     Dosage: UNKNOWN DOSE BY SPLITTING THEM INTO HALF AS NEEDED
     Route: 048
     Dates: start: 201404, end: 201405
  2. PERCOCET [Concomitant]
     Indication: PAIN
     Dosage: (OXYCODONE 10MG/ ACETAMINOPHEN 325MG), 4X/DAY

REACTIONS (1)
  - Drug ineffective [Unknown]
